FAERS Safety Report 23297895 (Version 1)
Quarter: 2023Q4

REPORT INFORMATION
  Report Type: Spontaneous
  Country: IT (occurrence: IT)
  Receive Date: 20231214
  Receipt Date: 20231214
  Transmission Date: 20240110
  Serious: No
  Sender: FDA-Public Use
  Company Number: IT-ROCHE-2168226

PATIENT
  Age: 65 Year
  Sex: Female
  Weight: 55 kg

DRUGS (38)
  1. CAPECITABINE [Suspect]
     Active Substance: CAPECITABINE
     Indication: HER2 positive breast cancer
     Dosage: MOST RECENT DOSE OF CAPECITABINE WAS RECEIVED ON 01/OCT/2020, 20/FEB/2020.?MOST RECENT DOSE PRIO...
     Route: 048
     Dates: start: 20200220
  2. PACLITAXEL [Suspect]
     Active Substance: PACLITAXEL
     Indication: HER2 positive breast cancer
     Dosage: MOST RECENT DOSE ON 16/OCT/2018
     Route: 042
     Dates: start: 20180731
  3. KADCYLA [Suspect]
     Active Substance: ADO-TRASTUZUMAB EMTANSINE
     Indication: HER2 positive breast cancer
     Dosage: MOST RECENT DOSE: 09/JAN/2020
     Route: 042
     Dates: start: 20191009
  4. HERCEPTIN [Suspect]
     Active Substance: TRASTUZUMAB
     Indication: HER2 positive breast cancer
     Dosage: LAST DOSE ON 29/MAY/2018
     Route: 042
     Dates: start: 20180507
  5. PERJETA [Suspect]
     Active Substance: PERTUZUMAB
     Indication: HER2 positive breast cancer
     Dosage: LAST DOSE ON 29/MAY/2018
     Route: 042
     Dates: start: 20180507
  6. TAXOTERE [Suspect]
     Active Substance: DOCETAXEL
     Indication: HER2 positive breast cancer
     Dosage: LAST DOSE ON 19/JUN/2018
     Route: 042
     Dates: start: 20180507
  7. NERATINIB [Suspect]
     Active Substance: NERATINIB
     Indication: HER2 positive breast cancer
     Dosage: MOST RECENT DOSE: 07/JAN/2020
     Route: 048
     Dates: start: 20210317
  8. DENOSUMAB [Suspect]
     Active Substance: DENOSUMAB
     Indication: HER2 positive breast cancer
     Dosage: OTHER IMMUNOTHERAPY
     Route: 058
     Dates: start: 20181009
  9. AROMASIN [Suspect]
     Active Substance: EXEMESTANE
     Indication: HER2 positive breast cancer
     Route: 048
     Dates: start: 20190213, end: 20191030
  10. TYKERB [Suspect]
     Active Substance: LAPATINIB DITOSYLATE
     Indication: HER2 positive breast cancer
     Dosage: MOST RECENT DOSE: 07/OCT/2020
     Route: 048
     Dates: start: 20200220
  11. NAVELBINE [Suspect]
     Active Substance: VINORELBINE TARTRATE
     Indication: HER2 positive breast cancer
     Dosage: MOST RECENT DOSE: 11/FEB/2021 FREQUENCY: OTHER
     Route: 042
     Dates: start: 20201016
  12. LEVOTHYROXINE SODIUM [Concomitant]
     Active Substance: LEVOTHYROXINE SODIUM
     Dosage: ONGOING = CHECKED
  13. ZOLOFT [Concomitant]
     Active Substance: SERTRALINE HYDROCHLORIDE
     Dosage: ONGOING = CHECKED
     Dates: start: 20160803
  14. CHLORPHENIRAMINE MALEATE [Concomitant]
     Active Substance: CHLORPHENIRAMINE MALEATE
     Dosage: ONGOING = NOT CHECKED
     Dates: start: 20180507, end: 20210204
  15. CHOLECALCIFEROL [Concomitant]
     Active Substance: CHOLECALCIFEROL
     Dosage: ONGOING = CHECKED
     Dates: start: 20180727
  16. XGEVA [Concomitant]
     Active Substance: DENOSUMAB
     Dosage: ONGOING = NOT CHECKED
     Dates: start: 20181009, end: 20200618
  17. CALCIUM CARBONATE\CHOLECALCIFEROL [Concomitant]
     Active Substance: CALCIUM CARBONATE\CHOLECALCIFEROL
     Dosage: ONGOING = NOT CHECKED
     Dates: start: 20190615, end: 20210715
  18. BISOPROLOL FUMARATE [Concomitant]
     Active Substance: BISOPROLOL FUMARATE
     Indication: Hypertension
     Dosage: ONGOING = CHECKED
     Dates: start: 20190701
  19. RAMIPRIL [Concomitant]
     Active Substance: RAMIPRIL
     Indication: Hypertension
     Dosage: ONGOING = CHECKED
     Dates: start: 20190701
  20. PANTOPRAZOLE [Concomitant]
     Active Substance: PANTOPRAZOLE
     Dosage: ONGOING = NOT CHECKED
     Dates: start: 20191015, end: 20210322
  21. UREA [Concomitant]
     Active Substance: UREA
     Dosage: ONGOING = NOT CHECKED
     Dates: start: 20200415, end: 20201215
  22. ARIXTRA [Concomitant]
     Active Substance: FONDAPARINUX SODIUM
     Indication: Thrombosis
     Dosage: ONGOING = NOT CHECKED
     Dates: start: 20200806, end: 20210224
  23. DEXAMETHASONE [Concomitant]
     Active Substance: DEXAMETHASONE
     Dosage: ONGOING = CHECKED
     Dates: start: 20180502
  24. FAMOTIDINE [Concomitant]
     Active Substance: FAMOTIDINE
     Indication: Gastrooesophageal reflux disease
     Dosage: ONGOING = CHECKED
     Dates: start: 20210414
  25. RANITIDINE [Concomitant]
     Active Substance: RANITIDINE
     Dates: start: 20180507, end: 20181002
  26. METOCLOPRAMIDE HYDROCHLORIDE [Concomitant]
     Active Substance: METOCLOPRAMIDE HYDROCHLORIDE
     Dates: start: 20180625, end: 20180731
  27. DEXAMETHASONE [Concomitant]
     Active Substance: DEXAMETHASONE
     Dates: start: 20180507, end: 20181002
  28. CALCIUM CARBONATE [Concomitant]
     Active Substance: CALCIUM CARBONATE
     Dates: start: 20180727
  29. CALCIUM CARBONATE [Concomitant]
     Active Substance: CALCIUM CARBONATE
     Dates: start: 20180915, end: 20190615
  30. TEICOPLANIN [Concomitant]
     Active Substance: TEICOPLANIN
  31. FLUCONAZOLE [Concomitant]
     Active Substance: FLUCONAZOLE
  32. CEFEPIME [Concomitant]
     Active Substance: CEFEPIME HYDROCHLORIDE
  33. LEVOFLOXACIN [Concomitant]
     Active Substance: LEVOFLOXACIN
  34. AMIKACIN [Concomitant]
     Active Substance: AMIKACIN
  35. MYCOSTATIN [Concomitant]
     Active Substance: NYSTATIN
  36. POLASE [ASPARTIC ACID;MAGNESIUM CITRATE;POTASSIUM GLUCONATE] [Concomitant]
  37. ENALAPRIL MALEATE [Concomitant]
     Active Substance: ENALAPRIL MALEATE
  38. FENTANYL [Concomitant]
     Active Substance: FENTANYL\FENTANYL CITRATE

REACTIONS (7)
  - Diarrhoea [Recovered/Resolved]
  - Performance status decreased [Recovered/Resolved]
  - Performance status decreased [Not Recovered/Not Resolved]
  - Palmar-plantar erythrodysaesthesia syndrome [Recovered/Resolved]
  - Fatigue [Recovered/Resolved]
  - Dysaesthesia [Recovered/Resolved]
  - Skin toxicity [Recovered/Resolved]

NARRATIVE: CASE EVENT DATE: 20180806
